FAERS Safety Report 24202921 (Version 1)
Quarter: 2024Q3

REPORT INFORMATION
  Report Type: Spontaneous
  Country: US (occurrence: US)
  Receive Date: 20240813
  Receipt Date: 20240813
  Transmission Date: 20241017
  Serious: No
  Sender: TOLMAR
  Company Number: US-TOLMAR, INC.-24US051153

PATIENT
  Age: 50 Year
  Sex: Female

DRUGS (2)
  1. ELIGARD [Suspect]
     Active Substance: LEUPROLIDE ACETATE
     Indication: Breast cancer female
     Dosage: 7.5 MILLIGRAM, EVERY 28 DAYS
     Route: 058
     Dates: start: 20240611
  2. ELIGARD [Suspect]
     Active Substance: LEUPROLIDE ACETATE
     Dosage: 7.5 MILLIGRAM, EVERY 28 DAYS
     Route: 058
     Dates: start: 20240309

REACTIONS (4)
  - Off label use [Not Recovered/Not Resolved]
  - Intercepted product preparation error [Unknown]
  - Syringe issue [Unknown]
  - Device occlusion [Unknown]

NARRATIVE: CASE EVENT DATE: 20240309
